FAERS Safety Report 9098813 (Version 2)
Quarter: 2013Q2

REPORT INFORMATION
  Report Type: Spontaneous
  Country: US (occurrence: US)
  Receive Date: 20130213
  Receipt Date: 20130520
  Transmission Date: 20140414
  Serious: No
  Sender: FDA-Public Use
  Company Number: US-009507513-1302USA004467

PATIENT
  Sex: Female

DRUGS (1)
  1. IMPLANON [Suspect]
     Indication: CONTRACEPTION
     Dosage: UNK
     Route: 058
     Dates: start: 20110908, end: 20130408

REACTIONS (4)
  - Injury [Unknown]
  - Weight increased [Unknown]
  - Device dislocation [Unknown]
  - Application site discomfort [Recovered/Resolved]
